FAERS Safety Report 10100606 (Version 1)
Quarter: 2014Q2

REPORT INFORMATION
  Report Type: Spontaneous
  Country: US (occurrence: US)
  Receive Date: 20140423
  Receipt Date: 20140423
  Transmission Date: 20141212
  Serious: Yes (Other)
  Sender: FDA-Public Use
  Company Number: US-BAXTER-2014BAX019475

PATIENT
  Age: 54 Year
  Sex: Female

DRUGS (2)
  1. GAMMAGARD LIQUID [Suspect]
     Indication: SENSITISATION
     Dosage: 6 TREATMENTS
     Route: 042
  2. CARFILZOMIB [Concomitant]
     Indication: SENSITISATION
     Dosage: 6 TREATMENTS
     Route: 065

REACTIONS (1)
  - Drug ineffective [Not Recovered/Not Resolved]
